FAERS Safety Report 7094024-6 (Version None)
Quarter: 2010Q4

REPORT INFORMATION
  Report Type: 
  Country: None (occurrence: None)
  Receive Date: 20101102
  Receipt Date: 20101026
  Transmission Date: 20110411
  Serious: Yes (Hospitalization)
  Sender: FDA-Public Use
  Company Number: 2010MA003952

PATIENT
  Age: 67 Year
  Sex: Male

DRUGS (1)
  1. ACYCLOVIR [Suspect]
     Indication: HERPES ZOSTER
     Dosage: 4000 MG; QD; PO
     Route: 048
     Dates: start: 20080701

REACTIONS (14)
  - AGITATION [None]
  - APHASIA [None]
  - ASTERIXIS [None]
  - ATROPHY [None]
  - CONFUSIONAL STATE [None]
  - DYSARTHRIA [None]
  - ENCEPHALOPATHY [None]
  - HYPERTENSION [None]
  - MEMORY IMPAIRMENT [None]
  - MYOCLONUS [None]
  - NEUROTOXICITY [None]
  - OVERDOSE [None]
  - PARESIS [None]
  - TREMOR [None]
